FAERS Safety Report 8072638-4 (Version None)
Quarter: 2012Q1

REPORT INFORMATION
  Report Type: 
  Country: None (occurrence: None)
  Receive Date: 20120126
  Receipt Date: 20120123
  Transmission Date: 20120608
  Serious: Yes (Life-Threatening, Hospitalization)
  Sender: FDA-Public Use
  Company Number: CA-AMGEN-CANNI2011061784

PATIENT
  Age: 67 Year
  Sex: Female

DRUGS (9)
  1. DIOVAN [Concomitant]
     Dosage: UNK
     Route: 048
     Dates: start: 20090105
  2. TOLOXIN [Concomitant]
     Dosage: D
     Route: 048
     Dates: start: 19880115
  3. DENOSUMAB [Suspect]
     Indication: OSTEOPOROSIS
     Dosage: 60 MG, Q6MO
     Route: 058
     Dates: start: 20111028
  4. SYNTHROID [Concomitant]
     Dosage: 0.112 MG, UNK
     Route: 048
     Dates: start: 19880115
  5. COUMADIN [Concomitant]
     Dosage: 7 MG, UNK
     Route: 048
     Dates: start: 19880803
  6. NAPROXIN [Concomitant]
     Dosage: 375 MG, BID
     Route: 048
     Dates: start: 20071109
  7. PANTOPRAZOLE SODIUM [Concomitant]
     Dosage: 40 MG, UNK
     Route: 048
  8. DIGOXIN [Concomitant]
  9. VOLTAREN [Concomitant]
     Dosage: UNK
     Dates: start: 20110701

REACTIONS (2)
  - CARDIAC ARREST [None]
  - CEREBROVASCULAR ACCIDENT [None]
